FAERS Safety Report 17984996 (Version 1)
Quarter: 2020Q3

REPORT INFORMATION
  Report Type: Spontaneous
  Country: JP (occurrence: JP)
  Receive Date: 20200706
  Receipt Date: 20200706
  Transmission Date: 20201103
  Serious: Yes (Other)
  Sender: FDA-Public Use
  Company Number: JP-PFIZER INC-2020252555

PATIENT
  Age: 64 Year
  Sex: Female

DRUGS (1)
  1. RHEUMATREX [Suspect]
     Active Substance: METHOTREXATE SODIUM
     Indication: SARCOIDOSIS
     Dosage: 7 DF, WEEKLY (7 CAPSULES ONCE A WEEK; 3 CAPSULES IN THE MORNING AND 4 CAPSULES AT NIGHT)
     Route: 048

REACTIONS (13)
  - Nausea [Unknown]
  - Pain [Unknown]
  - Bedridden [Recovered/Resolved]
  - Product complaint [Unknown]
  - Emotional distress [Unknown]
  - Dyspepsia [Unknown]
  - Product use in unapproved indication [Unknown]
  - Discomfort [Unknown]
  - Breast pain [Unknown]
  - Sleep disorder [Unknown]
  - Angina pectoris [Unknown]
  - Off label use [Unknown]
  - Gastrooesophageal reflux disease [Unknown]

NARRATIVE: CASE EVENT DATE: 2019
